FAERS Safety Report 6039962-8 (Version None)
Quarter: 2009Q1

REPORT INFORMATION
  Report Type: 
  Country: None (occurrence: None)
  Receive Date: 20090116
  Receipt Date: 20071102
  Transmission Date: 20090719
  Serious: No
  Sender: FDA-Public Use
  Company Number: US-BRISTOL-MYERS SQUIBB COMPANY-13967682

PATIENT
  Age: 1 Decade
  Sex: Male
  Weight: 28 kg

DRUGS (2)
  1. ABILIFY [Suspect]
     Indication: AFFECTIVE DISORDER
     Dosage: STARTED IN 2005,DISCONTINUED AND RESTARTED RECENTLY AND AGAIN WITHDRAWN.
     Route: 048
  2. CONCERTA [Concomitant]

REACTIONS (2)
  - PROTRUSION TONGUE [None]
  - TARDIVE DYSKINESIA [None]
